FAERS Safety Report 19272042 (Version 1)
Quarter: 2021Q2

REPORT INFORMATION
  Report Type: Spontaneous
  Country: US (occurrence: US)
  Receive Date: 20210519
  Receipt Date: 20210519
  Transmission Date: 20210717
  Serious: Yes (Hospitalization, Other)
  Sender: FDA-Public Use
  Company Number: US-GRANULES-US-2021GRALIT00288

PATIENT
  Age: 52 Year
  Sex: Male

DRUGS (3)
  1. DEXTROSE. [Interacting]
     Active Substance: DEXTROSE
     Route: 065
  2. SODIUM BICARBONATE. [Interacting]
     Active Substance: SODIUM BICARBONATE
     Route: 065
  3. METFORMIN HCL [Suspect]
     Active Substance: METFORMIN HYDROCHLORIDE
     Indication: PRODUCT USED FOR UNKNOWN INDICATION
     Route: 065

REACTIONS (7)
  - Hyperlactacidaemia [Recovered/Resolved]
  - Toxicity to various agents [Recovering/Resolving]
  - Intentional overdose [Unknown]
  - Depressed level of consciousness [Unknown]
  - Mental status changes [Recovered/Resolved]
  - Hypoglycaemia [Unknown]
  - Metabolic acidosis [Unknown]
